FAERS Safety Report 5503848-5 (Version None)
Quarter: 2007Q4

REPORT INFORMATION
  Report Type: 
  Country: None (occurrence: None)
  Receive Date: 20071101
  Receipt Date: 20071024
  Transmission Date: 20080405
  Serious: Yes (Other)
  Sender: FDA-Public Use
  Company Number: US-WYE-H00877407

PATIENT
  Sex: Female

DRUGS (1)
  1. PREMARIN [Suspect]
     Dosage: UNKNOWN
     Route: 065
     Dates: start: 20040101, end: 20040101

REACTIONS (1)
  - NEOPLASM MALIGNANT [None]
